FAERS Safety Report 9231526 (Version 2)
Quarter: 2013Q2

REPORT INFORMATION
  Report Type: Spontaneous
  Country: JP (occurrence: JP)
  Receive Date: 20130415
  Receipt Date: 20130515
  Transmission Date: 20140414
  Serious: Yes (Hospitalization)
  Sender: FDA-Public Use
  Company Number: JP-GLAXOSMITHKLINE-B0882485A

PATIENT
  Age: 51 Year
  Sex: Female
  Weight: 40 kg

DRUGS (6)
  1. ZINNAT [Suspect]
     Indication: HAEMORRHOIDS
     Dosage: 250MG THREE TIMES PER DAY
     Route: 048
     Dates: start: 20130301, end: 20130314
  2. VOLTAREN [Suspect]
     Indication: HAEMORRHOIDS
     Dosage: 25MG TWICE PER DAY
     Route: 048
     Dates: start: 20130301, end: 20130314
  3. PROLMON [Concomitant]
     Indication: HAEMORRHOIDS
     Dosage: 20MG TWICE PER DAY
     Route: 048
     Dates: start: 20130301, end: 20130314
  4. AZUCURENIN S [Concomitant]
     Indication: HAEMORRHOIDS
     Dosage: .5G TWICE PER DAY
     Route: 048
     Dates: start: 20130301, end: 20130314
  5. BIOFERMIN [Concomitant]
     Indication: HAEMORRHOIDS
     Dosage: .5G TWICE PER DAY
     Route: 048
     Dates: start: 20130301, end: 20130314
  6. FLORID [Concomitant]
     Indication: HAEMORRHOIDS
     Route: 061
     Dates: start: 20130304, end: 20130314

REACTIONS (1)
  - Drug-induced liver injury [Recovered/Resolved]
